FAERS Safety Report 7345422-4 (Version None)
Quarter: 2011Q1

REPORT INFORMATION
  Report Type: 
  Country: None (occurrence: None)
  Receive Date: 20110310
  Receipt Date: 20110228
  Transmission Date: 20110831
  Serious: Yes (Other)
  Sender: FDA-Public Use
  Company Number: RU-SANOFI-AVENTIS-2011SA012730

PATIENT
  Age: 52 Year
  Sex: Male

DRUGS (7)
  1. PLAVIX [Suspect]
     Indication: THROMBOSIS PROPHYLAXIS
     Route: 048
     Dates: start: 20091201, end: 20101201
  2. PLAVIX [Suspect]
     Indication: MYOCARDIAL INFARCTION
     Route: 048
     Dates: start: 20091201, end: 20101201
  3. ZOFENOPRIL [Concomitant]
     Route: 048
     Dates: start: 20091201, end: 20101201
  4. PLAVIX [Suspect]
     Route: 048
     Dates: start: 20091201, end: 20101201
  5. PLAVIX [Suspect]
     Indication: CORONARY ARTERIAL STENT INSERTION
     Route: 048
     Dates: start: 20091201, end: 20101201
  6. ACETYLSALICYLIC ACID [Concomitant]
     Route: 048
     Dates: start: 20091201, end: 20101201
  7. ATORVASTATIN [Concomitant]
     Route: 048
     Dates: start: 20091201, end: 20101201

REACTIONS (9)
  - DYSPEPSIA [None]
  - EROSIVE DUODENITIS [None]
  - GASTRITIS EROSIVE [None]
  - CONTUSION [None]
  - DEPRESSED MOOD [None]
  - NAUSEA [None]
  - DECREASED APPETITE [None]
  - VOMITING [None]
  - EROSIVE OESOPHAGITIS [None]
